FAERS Safety Report 6595073-4 (Version None)
Quarter: 2010Q1

REPORT INFORMATION
  Report Type: 
  Country: None (occurrence: None)
  Receive Date: 20100212
  Receipt Date: 20100205
  Transmission Date: 20100710
  Serious: Yes (Other)
  Sender: FDA-Public Use
  Company Number: 2010SP001719

PATIENT
  Age: 48 Year
  Sex: Male

DRUGS (2)
  1. REMERON [Suspect]
     Indication: BURNOUT SYNDROME
     Dosage: 30 MG; QPM, 30 MG; QD
     Dates: start: 20091106
  2. VENLAFAXINE (CON.) [Concomitant]

REACTIONS (2)
  - DISTURBANCE IN ATTENTION [None]
  - MEMORY IMPAIRMENT [None]
